FAERS Safety Report 6576921-0 (Version None)
Quarter: 2010Q1

REPORT INFORMATION
  Report Type: 
  Country: None (occurrence: None)
  Receive Date: 20100210
  Receipt Date: 20100201
  Transmission Date: 20100710
  Serious: Yes (Other)
  Sender: FDA-Public Use
  Company Number: AU-ELI_LILLY_AND_COMPANY-AU201002000335

PATIENT
  Sex: Male

DRUGS (1)
  1. ZYPREXA [Suspect]
     Dosage: UNK, UNKNOWN
     Route: 065

REACTIONS (10)
  - AMNESIA [None]
  - EPISTAXIS [None]
  - FATIGUE [None]
  - HEAD DISCOMFORT [None]
  - LIVER DISORDER [None]
  - LOSS OF LIBIDO [None]
  - SCRATCH [None]
  - SUICIDAL IDEATION [None]
  - UNEVALUABLE EVENT [None]
  - WEIGHT INCREASED [None]
